FAERS Safety Report 24450604 (Version 1)
Quarter: 2024Q4

REPORT INFORMATION
  Report Type: Spontaneous
  Country: IT (occurrence: IT)
  Receive Date: 20241017
  Receipt Date: 20241017
  Transmission Date: 20250114
  Serious: Yes (Other)
  Sender: FRESENIUS KABI
  Company Number: None

PATIENT
  Age: 70 Year
  Sex: Male

DRUGS (4)
  1. OXALIPLATIN [Suspect]
     Active Substance: OXALIPLATIN
     Indication: Intestinal adenocarcinoma
     Dosage: FORM OF ADMIN-SOLUTION FOR INFUSION
     Route: 042
     Dates: start: 20240821, end: 20240821
  2. FLUOROURACIL [Suspect]
     Active Substance: FLUOROURACIL
     Indication: Intestinal adenocarcinoma
     Dosage: FOA-SOLUTION FOR INFUSION
     Route: 042
     Dates: start: 20240821, end: 20240821
  3. FLUOROURACIL [Suspect]
     Active Substance: FLUOROURACIL
     Dosage: FOA-SOLUTION FOR INFUSION
     Route: 042
     Dates: start: 20240821, end: 20240821
  4. LEUCOVORIN CALCIUM [Concomitant]
     Active Substance: LEUCOVORIN CALCIUM
     Indication: Product used for unknown indication

REACTIONS (3)
  - Azotaemia [Unknown]
  - Blood creatinine increased [Unknown]
  - Blood lactate dehydrogenase increased [Unknown]

NARRATIVE: CASE EVENT DATE: 20240902
